FAERS Safety Report 7932785-1 (Version None)
Quarter: 2011Q4

REPORT INFORMATION
  Report Type: 
  Country: None (occurrence: None)
  Receive Date: 20111122
  Receipt Date: 20111116
  Transmission Date: 20120403
  Serious: Yes (Hospitalization, Other)
  Sender: FDA-Public Use
  Company Number: HU-BRISTOL-MYERS SQUIBB COMPANY-16228934

PATIENT
  Age: 73 Year
  Sex: Male

DRUGS (6)
  1. HUMULIN INSULIN [Suspect]
     Indication: TYPE 2 DIABETES MELLITUS
     Dosage: 1 DF: 32 UNIT NOS
     Dates: start: 20110913
  2. BLINDED: SAXAGLIPTIN [Suspect]
     Indication: TYPE 2 DIABETES MELLITUS
     Dates: start: 20110214
  3. METFORMIN HCL [Suspect]
     Indication: TYPE 2 DIABETES MELLITUS
  4. BLINDED: PLACEBO [Suspect]
     Indication: TYPE 2 DIABETES MELLITUS
     Dates: start: 20110214
  5. ASPIRIN [Concomitant]
  6. DIAPREL [Suspect]
     Indication: TYPE 2 DIABETES MELLITUS

REACTIONS (2)
  - JAUNDICE [None]
  - PANCREATIC CARCINOMA METASTATIC [None]
